FAERS Safety Report 11875826 (Version 2)
Quarter: 2015Q4

REPORT INFORMATION
  Report Type: Report from Study
  Country: US (occurrence: US)
  Receive Date: 20151229
  Receipt Date: 20151231
  Transmission Date: 20160305
  Serious: Yes (Other)
  Sender: FDA-Public Use
  Company Number: US-BAXALTA-2015BLT003401

PATIENT
  Age: 70 Year
  Sex: Female
  Weight: 77.1 kg

DRUGS (1)
  1. GAMMAGARD LIQUID [Suspect]
     Active Substance: HUMAN IMMUNOGLOBULIN G
     Indication: PRIMARY IMMUNODEFICIENCY SYNDROME
     Dosage: 400 MG, EVERY 4 WK
     Route: 042
     Dates: start: 201504

REACTIONS (5)
  - Musculoskeletal pain [Recovered/Resolved]
  - Weight increased [Not Recovered/Not Resolved]
  - Neck pain [Recovered/Resolved]
  - Chest discomfort [Recovered/Resolved]
  - Fatigue [Not Recovered/Not Resolved]

NARRATIVE: CASE EVENT DATE: 201504
